FAERS Safety Report 9155918 (Version 2)
Quarter: 2013Q1

REPORT INFORMATION
  Report Type: Spontaneous
  Country: JP (occurrence: JP)
  Receive Date: 20130311
  Receipt Date: 20130315
  Transmission Date: 20140127
  Serious: Yes (Hospitalization, Other)
  Sender: FDA-Public Use
  Company Number: JP-PFIZER INC-2013079783

PATIENT
  Age: 77 Year
  Sex: Female

DRUGS (1)
  1. CABASER [Suspect]
     Indication: PARKINSON^S DISEASE
     Dosage: UNK
     Route: 048
     Dates: start: 2005

REACTIONS (2)
  - Gastric fistula [Unknown]
  - Pneumonia aspiration [Unknown]
